FAERS Safety Report 8521520-4 (Version None)
Quarter: 2012Q3

REPORT INFORMATION
  Report Type: 
  Country: None (occurrence: None)
  Receive Date: 20120719
  Receipt Date: 20120711
  Transmission Date: 20120928
  Serious: Yes (Other)
  Sender: FDA-Public Use
  Company Number: PHHY2012BR051633

PATIENT
  Sex: Female

DRUGS (7)
  1. CLONAZEPAM [Concomitant]
     Indication: ANXIETY
     Dosage: 2 MG, DAILY
     Route: 048
  2. BEROTEC [Concomitant]
     Indication: ASTHMA
     Dosage: UNK MG, UNK
  3. FORMOTEROL FUMARATE [Suspect]
     Indication: ASTHMA
     Dosage: 1 DF (12 MCG FORMOTEROL AND 200 MCG BUDESONIDE), BID
  4. SIMVASTATIN [Concomitant]
     Indication: BLOOD CHOLESTEROL
     Dosage: 40 MG, DAILY
     Route: 048
  5. ATROVENT [Concomitant]
     Indication: ASTHMA
     Dosage: UNK MG, UNK
  6. AMLODOPINE BESYLATE AND VALSARTAN [Suspect]
     Indication: BLOOD PRESSURE
     Dosage: 1 DF (320 MG VALSAR AND 5 MG AMLO), DAILY
     Route: 048
     Dates: start: 20120701
  7. METICORTEN [Concomitant]
     Indication: ASTHMA
     Dosage: 20 MG, QD (MORNING)
     Route: 048

REACTIONS (1)
  - COLORECTAL CANCER [None]
